FAERS Safety Report 13068522 (Version 1)
Quarter: 2016Q4

REPORT INFORMATION
  Report Type: Spontaneous
  Country: FR (occurrence: FR)
  Receive Date: 20161228
  Receipt Date: 20161228
  Transmission Date: 20170207
  Serious: Yes (Other)
  Sender: FDA-Public Use
  Company Number: FR-PFIZER INC-2016595540

PATIENT
  Age: 66 Year
  Sex: Male

DRUGS (5)
  1. 5-FLUOROURACIL /00098801/ [Concomitant]
     Active Substance: FLUOROURACIL
     Indication: COLON CANCER
     Dosage: UNK
  2. ATROPINE. [Concomitant]
     Active Substance: ATROPINE
     Dosage: UNK
  3. CAMPTO [Suspect]
     Active Substance: IRINOTECAN
     Indication: COLON CANCER
     Dosage: 280 MG, SINGLE (CYCLE 6 DAY 1)
     Route: 042
     Dates: start: 20161128
  4. AVASTIN [Concomitant]
     Active Substance: BEVACIZUMAB
     Indication: COLON CANCER
     Dosage: UNK
  5. DEXAMETHASONE. [Concomitant]
     Active Substance: DEXAMETHASONE
     Dosage: UNK

REACTIONS (2)
  - Pruritus generalised [Recovered/Resolved]
  - Urticaria [Recovered/Resolved]

NARRATIVE: CASE EVENT DATE: 20161128
